FAERS Safety Report 13627395 (Version 2)
Quarter: 2017Q3

REPORT INFORMATION
  Report Type: Spontaneous
  Country: US (occurrence: US)
  Receive Date: 20170608
  Receipt Date: 20170907
  Transmission Date: 20171127
  Serious: Yes (Other)
  Sender: FDA-Public Use
  Company Number: US-SA-2017SA102845

PATIENT
  Age: 61 Year
  Sex: Female

DRUGS (1)
  1. AUBAGIO [Suspect]
     Active Substance: TERIFLUNOMIDE
     Indication: MULTIPLE SCLEROSIS
     Route: 048

REACTIONS (7)
  - Fatigue [Unknown]
  - Musculoskeletal pain [Unknown]
  - Cerebral disorder [Unknown]
  - Speech disorder [Unknown]
  - Condition aggravated [Unknown]
  - Malaise [Unknown]
  - Memory impairment [Unknown]
